FAERS Safety Report 8109042-6 (Version None)
Quarter: 2012Q1

REPORT INFORMATION
  Report Type: 
  Country: None (occurrence: None)
  Receive Date: 20120202
  Receipt Date: 20120131
  Transmission Date: 20120608
  Serious: Yes (Other)
  Sender: FDA-Public Use
  Company Number: US-PFIZER INC-2012027173

PATIENT
  Sex: Female
  Weight: 54.42 kg

DRUGS (8)
  1. PREMARIN [Suspect]
     Indication: HORMONE THERAPY
     Dosage: 1.25 MG, DAILY
     Route: 048
     Dates: start: 19960101, end: 20111001
  2. WELLBUTRIN [Concomitant]
     Indication: DEPRESSION
     Dosage: 300 MG, DAILY
  3. CLORAZEPATE DIPOTASSIUM [Concomitant]
     Indication: ANXIETY
     Dosage: 15 MG, 4X/DAY
  4. LEVOTHYROXINE [Concomitant]
     Indication: THYROID DISORDER
     Dosage: 25 UG, DAILY
  5. PROZAC [Concomitant]
     Dosage: 60 MG, DAILY
  6. DOXEPIN [Concomitant]
     Dosage: 32 MG NIGHT, 250 MG MORNING
  7. ESTRADIOL [Suspect]
     Dosage: 0.5 MG, DAILY
     Dates: start: 20111001
  8. OMEPRAZOLE [Concomitant]
     Indication: DYSPEPSIA
     Dosage: 20 MG, DAILY

REACTIONS (5)
  - ARTHROPATHY [None]
  - SLEEP DISORDER [None]
  - PAIN [None]
  - HOT FLUSH [None]
  - DRUG INEFFECTIVE [None]
